FAERS Safety Report 7115568-4 (Version None)
Quarter: 2010Q4

REPORT INFORMATION
  Report Type: 
  Country: None (occurrence: None)
  Receive Date: 20101122
  Receipt Date: 20101109
  Transmission Date: 20110411
  Serious: Yes (Hospitalization, Other)
  Sender: FDA-Public Use
  Company Number: FR-NOVOPROD-316275

PATIENT
  Age: 61 Year
  Sex: Female
  Weight: 95 kg

DRUGS (12)
  1. VICTOZA [Suspect]
     Indication: TYPE 2 DIABETES MELLITUS
     Dosage: 1.2 MG, QD
     Dates: start: 20100715, end: 20100101
  2. VICTOZA [Suspect]
     Dosage: 1.2 MG, QD
     Route: 058
     Dates: start: 20100101
  3. ACETAMINOPHEN [Concomitant]
  4. KARDEGIC                           /00002703/ [Concomitant]
  5. OMEPRAZOLE [Concomitant]
  6. TAHOR [Concomitant]
  7. SINGULAIR [Concomitant]
  8. STAGID [Concomitant]
  9. OMEGA 3                            /00931501/ [Concomitant]
  10. SOLUPRED                           /00016201/ [Concomitant]
  11. SYMBICORT [Concomitant]
     Dosage: 800 MG, UNK
  12. NISISCO [Concomitant]
     Dosage: 172.5 MG, UNK

REACTIONS (1)
  - CYTOLYTIC HEPATITIS [None]
